FAERS Safety Report 7981673-3 (Version None)
Quarter: 2011Q4

REPORT INFORMATION
  Report Type: 
  Country: None (occurrence: None)
  Receive Date: 20111215
  Receipt Date: 20111207
  Transmission Date: 20120403
  Serious: Yes (Other)
  Sender: FDA-Public Use
  Company Number: US-JNJFOC-20111203462

PATIENT
  Sex: Female

DRUGS (3)
  1. FENTANYL CITRATE [Suspect]
     Indication: PAIN
     Route: 062
     Dates: start: 20110101
  2. FENTANYL-100 [Suspect]
     Indication: PAIN
     Route: 062
     Dates: start: 20110101
  3. DURAGESIC-100 [Suspect]
     Indication: PAIN
     Route: 062
     Dates: start: 20110101, end: 20110101

REACTIONS (3)
  - PRURITUS [None]
  - RASH [None]
  - WEIGHT INCREASED [None]
